FAERS Safety Report 4662293-5 (Version None)
Quarter: 2005Q2

REPORT INFORMATION
  Report Type: 
  Country: None (occurrence: None)
  Receive Date: 20050516
  Receipt Date: 20050504
  Transmission Date: 20051028
  Serious: Yes (Hospitalization)
  Sender: FDA-Public Use
  Company Number: US-GLAXOSMITHKLINE-A0557177A

PATIENT
  Age: 79 Year
  Sex: Female
  Weight: 66 kg

DRUGS (4)
  1. SENSODYNE-F [Suspect]
     Indication: SENSITIVITY OF TEETH
     Dates: start: 19800101
  2. ZOCOR [Concomitant]
  3. SYNTHROID [Concomitant]
  4. FOSAMAX [Concomitant]

REACTIONS (7)
  - BURNING SENSATION [None]
  - EYE HAEMORRHAGE [None]
  - GINGIVAL PAIN [None]
  - MACULAR DEGENERATION [None]
  - ORAL DISCOMFORT [None]
  - SCOTOMA [None]
  - VISION BLURRED [None]
